FAERS Safety Report 23335477 (Version 1)
Quarter: 2023Q4

REPORT INFORMATION
  Report Type: Spontaneous
  Country: US (occurrence: US)
  Receive Date: 20231225
  Receipt Date: 20231225
  Transmission Date: 20240110
  Serious: Yes (Hospitalization, Other)
  Sender: FDA-Public Use
  Company Number: US-GSKCCFUS-Case-01888114_AE-105390

PATIENT

DRUGS (1)
  1. VALTREX [Suspect]
     Active Substance: VALACYCLOVIR HYDROCHLORIDE
     Indication: Product used for unknown indication
     Dosage: UNK

REACTIONS (6)
  - Product residue present [Not Recovered/Not Resolved]
  - Hip fracture [Unknown]
  - Impaired gastric emptying [Unknown]
  - Gastrointestinal disorder [Unknown]
  - Gastrostomy [Not Recovered/Not Resolved]
  - Hospitalisation [Unknown]

NARRATIVE: CASE EVENT DATE: 20231212
